FAERS Safety Report 11215080 (Version 2)
Quarter: 2015Q3

REPORT INFORMATION
  Report Type: Spontaneous
  Country: JP (occurrence: JP)
  Receive Date: 20150624
  Receipt Date: 20150702
  Transmission Date: 20151125
  Serious: Yes (Other)
  Sender: FDA-Public Use
  Company Number: JP-JNJFOC-20150616696

PATIENT
  Age: 70 Year
  Sex: Male

DRUGS (4)
  1. WARFARIN [Suspect]
     Active Substance: WARFARIN
     Indication: HYPERLIPIDAEMIA
     Route: 048
  2. TRAMCET [Suspect]
     Active Substance: ACETAMINOPHEN\TRAMADOL
     Indication: PAIN
     Route: 048
  3. ITRIZOLE [Suspect]
     Active Substance: ITRACONAZOLE
     Indication: FUNGAL INFECTION
     Route: 048
  4. LYRICA [Suspect]
     Active Substance: PREGABALIN
     Indication: NEURALGIA
     Route: 048

REACTIONS (2)
  - Road traffic accident [Unknown]
  - Loss of consciousness [Recovered/Resolved]
